FAERS Safety Report 5955231-6 (Version None)
Quarter: 2008Q4

REPORT INFORMATION
  Report Type: 
  Country: None (occurrence: None)
  Receive Date: 20081117
  Receipt Date: 20081107
  Transmission Date: 20090506
  Serious: Yes (Disabling)
  Sender: FDA-Public Use
  Company Number: US-B.I. PHARMACEUTICALS,INC./RIDGEFIELD-2008-BP-01391PF

PATIENT
  Age: 51 Year
  Sex: Female
  Weight: 69 kg

DRUGS (4)
  1. SPIRIVA [Suspect]
     Indication: CHRONIC OBSTRUCTIVE PULMONARY DISEASE
     Dates: end: 20080822
  2. BIAXIN XL [Concomitant]
     Dates: start: 20070822, end: 20070903
  3. CLEOCIN [Concomitant]
     Dates: start: 20070822, end: 20070903
  4. TUSSIORGANI AND CODEINE [Concomitant]
     Dates: start: 20070822, end: 20070826

REACTIONS (7)
  - CHEST DISCOMFORT [None]
  - CYANOSIS [None]
  - DYSPNOEA [None]
  - FALL [None]
  - LIP SWELLING [None]
  - SYNCOPE [None]
  - TACHYCARDIA [None]
